FAERS Safety Report 8833089 (Version 2)
Quarter: 2012Q4

REPORT INFORMATION
  Report Type: 
  Country: JP (occurrence: JP)
  Receive Date: 20121010
  Receipt Date: 20121016
  Transmission Date: 20130627
  Serious: Yes (Other)
  Sender: FDA-Public Use
  Company Number: JP-PFIZER INC-2012250683

PATIENT

DRUGS (1)
  1. SOLANAX [Suspect]
     Dosage: UNK

REACTIONS (1)
  - Atrioventricular block [Unknown]
